FAERS Safety Report 24955282 (Version 1)
Quarter: 2025Q1

REPORT INFORMATION
  Report Type: Spontaneous
  Country: US (occurrence: None)
  Receive Date: 20250210
  Receipt Date: 20250210
  Transmission Date: 20250409
  Serious: Yes (Hospitalization)
  Sender: FDA-CTU
  Company Number: None

PATIENT
  Age: 20 Year
  Sex: Female
  Weight: 60.3 kg

DRUGS (5)
  1. LUMRYZ [Suspect]
     Active Substance: SODIUM OXYBATE
     Indication: Narcolepsy
     Dosage: FREQUENCY : AT BEDTIME;?
     Route: 048
     Dates: start: 20240506, end: 20240607
  2. Lumaryz 4.5 [Concomitant]
     Dates: start: 20240510, end: 20240516
  3. Lumaryz 6 [Concomitant]
     Dates: start: 20240517, end: 20240523
  4. Lumaryz 7.5 [Concomitant]
     Dates: start: 20240524, end: 20240530
  5. Lumaryz 9 [Concomitant]
     Dates: start: 20240531, end: 20240606

REACTIONS (1)
  - Substance-induced psychotic disorder [None]

NARRATIVE: CASE EVENT DATE: 20240607
